FAERS Safety Report 13526143 (Version 5)
Quarter: 2018Q4

REPORT INFORMATION
  Report Type: Spontaneous
  Country: JP (occurrence: JP)
  Receive Date: 20170509
  Receipt Date: 20181003
  Transmission Date: 20190204
  Serious: Yes (Hospitalization)
  Sender: FDA-Public Use
  Company Number: JP-ORPHAN EUROPE-2020427

PATIENT
  Age: 24 Month
  Sex: Female

DRUGS (6)
  1. CARBAGLU [Suspect]
     Active Substance: CARGLUMIC ACID
     Indication: METHYLMALONIC ACIDURIA
     Route: 050
     Dates: start: 20170216, end: 20170630
  2. BUPHENYL [Concomitant]
     Active Substance: SODIUM PHENYLBUTYRATE
  3. MONILAC [Concomitant]
     Active Substance: LACTULOSE
  4. CARBAGLU [Suspect]
     Active Substance: CARGLUMIC ACID
     Route: 050
     Dates: start: 20170701
  5. FLAGYL [Concomitant]
     Active Substance: METRONIDAZOLE\METRONIDAZOLE HYDROCHLORIDE
  6. L-CARNITIN [Concomitant]

REACTIONS (2)
  - Gastroenteritis norovirus [Recovered/Resolved]
  - Vomiting [Recovered/Resolved]

NARRATIVE: CASE EVENT DATE: 20170424
